FAERS Safety Report 4719188-8 (Version None)
Quarter: 2005Q3

REPORT INFORMATION
  Report Type: 
  Country: None (occurrence: None)
  Receive Date: 20050720
  Receipt Date: 20050601
  Transmission Date: 20060218
  Serious: Yes (Other)
  Sender: FDA-Public Use
  Company Number: S05-CAN-02439-01

PATIENT
  Age: 35 Year
  Sex: Female

DRUGS (4)
  1. CITALOPRAM HYDROBROMIDE [Suspect]
     Dosage: 20 MG QD
  2. TRAZODONE HCL [Suspect]
     Dosage: 50 MG QD
  3. ETHANOL [Concomitant]
  4. PHENOBARBITAL [Concomitant]

REACTIONS (6)
  - ELECTROCARDIOGRAM QT PROLONGED [None]
  - FEELING DRUNK [None]
  - INTENTIONAL MISUSE [None]
  - OVERDOSE [None]
  - PERSONALITY DISORDER [None]
  - TACHYCARDIA [None]
